FAERS Safety Report 24311599 (Version 1)
Quarter: 2024Q3

REPORT INFORMATION
  Report Type: Spontaneous
  Country: US (occurrence: None)
  Receive Date: 20240911
  Receipt Date: 20240911
  Transmission Date: 20241017
  Serious: Yes (Other)
  Sender: Public
  Company Number: None

PATIENT
  Age: 22 Year
  Sex: Female

DRUGS (1)
  1. COSENTYX [Suspect]
     Active Substance: SECUKINUMAB
     Indication: Psoriatic arthropathy
     Dosage: 300 MG EVERY 4 WEEKS SUBCUTANEOUS ?
     Route: 058
     Dates: start: 20240530, end: 20240911

REACTIONS (3)
  - Headache [None]
  - Fatigue [None]
  - Urinary tract infection [None]

NARRATIVE: CASE EVENT DATE: 20240628
